FAERS Safety Report 22156689 (Version 8)
Quarter: 2024Q4

REPORT INFORMATION
  Report Type: Report from Study
  Country: US (occurrence: US)
  Receive Date: 20230330
  Receipt Date: 20241121
  Transmission Date: 20250114
  Serious: Yes (Other)
  Sender: AMGEN
  Company Number: US-AMGEN-USASL2023053205

PATIENT
  Age: 61 Year
  Sex: Male
  Weight: 78.93 kg

DRUGS (25)
  1. XGEVA [Suspect]
     Active Substance: DENOSUMAB
     Indication: Product used for unknown indication
     Dosage: 120 MILLIGRAM/1.7 ML (70 MG/ML), QMO
     Route: 058
     Dates: start: 2022
  2. XGEVA [Suspect]
     Active Substance: DENOSUMAB
     Dosage: 120 MILLIGRAM/1.7 ML (70 MG/ML), QMO
     Route: 058
  3. XGEVA [Suspect]
     Active Substance: DENOSUMAB
     Dosage: 120 MILLIGRAM/1.7 ML (70 MG/ML), QMO
     Route: 058
  4. DEGARELIX [Concomitant]
     Active Substance: DEGARELIX
     Indication: Hormone replacement therapy
     Dosage: 80 MILLIGRAM
     Route: 058
     Dates: start: 2022
  5. DEGARELIX [Concomitant]
     Active Substance: DEGARELIX
     Dosage: 80 MILLIGRAM
     Route: 058
     Dates: start: 20220929
  6. DEGARELIX [Concomitant]
     Active Substance: DEGARELIX
     Dosage: 80 MILLIGRAM
     Route: 058
     Dates: start: 20220311
  7. DEGARELIX [Concomitant]
     Active Substance: DEGARELIX
     Dosage: 80 MILLIGRAM
     Route: 058
     Dates: start: 20221208
  8. DEGARELIX [Concomitant]
     Active Substance: DEGARELIX
     Dosage: 80 MILLIGRAM
     Route: 058
     Dates: start: 2023
  9. DEGARELIX [Concomitant]
     Active Substance: DEGARELIX
     Dosage: 80 MILLIGRAM
     Route: 058
     Dates: start: 20230323
  10. DEGARELIX [Concomitant]
     Active Substance: DEGARELIX
     Dosage: 80 MILLIGRAM
     Route: 058
     Dates: start: 20230427
  11. DEGARELIX [Concomitant]
     Active Substance: DEGARELIX
     Dosage: 80 MILLIGRAM
     Route: 058
     Dates: start: 20230601
  12. DEGARELIX [Concomitant]
     Active Substance: DEGARELIX
     Dosage: 80 MILLIGRAM
     Route: 058
     Dates: start: 20230706
  13. DEGARELIX [Concomitant]
     Active Substance: DEGARELIX
     Dosage: 80 MILLIGRAM
     Route: 058
     Dates: start: 20230809
  14. DEGARELIX [Concomitant]
     Active Substance: DEGARELIX
     Dosage: 80 MILLIGRAM
     Route: 058
     Dates: start: 20230914
  15. DEGARELIX [Concomitant]
     Active Substance: DEGARELIX
     Dosage: 80 MILLIGRAM
     Route: 058
     Dates: start: 20231020
  16. DEGARELIX [Concomitant]
     Active Substance: DEGARELIX
     Dosage: 80 MILLIGRAM
     Route: 058
     Dates: start: 20231120
  17. DEGARELIX [Concomitant]
     Active Substance: DEGARELIX
     Dosage: 80 MILLIGRAM
     Route: 058
     Dates: start: 20231228
  18. DEGARELIX [Concomitant]
     Active Substance: DEGARELIX
     Dosage: 80 MILLIGRAM
     Route: 058
     Dates: start: 20240201
  19. DEGARELIX [Concomitant]
     Active Substance: DEGARELIX
     Dosage: 80 MILLIGRAM
     Route: 058
     Dates: start: 20240307
  20. DEGARELIX [Concomitant]
     Active Substance: DEGARELIX
     Dosage: 80 MILLIGRAM
     Route: 058
     Dates: start: 20240411
  21. DEGARELIX [Concomitant]
     Active Substance: DEGARELIX
     Dosage: 80 MILLIGRAM
     Route: 058
     Dates: start: 20240516
  22. DEGARELIX [Concomitant]
     Active Substance: DEGARELIX
     Dosage: 80 MILLIGRAM
     Route: 058
     Dates: start: 20240622
  23. DEGARELIX [Concomitant]
     Active Substance: DEGARELIX
     Dosage: 80 MILLIGRAM
     Route: 058
     Dates: start: 20240725
  24. XTANDI [Concomitant]
     Active Substance: ENZALUTAMIDE
     Dosage: 40 MILLIGRAM, QD (TAKE 4 TABLET 160 MG)
     Route: 048
  25. VITAMINS [Concomitant]
     Active Substance: VITAMINS

REACTIONS (2)
  - Erectile dysfunction [Unknown]
  - Weight decreased [Unknown]

NARRATIVE: CASE EVENT DATE: 20241114
